FAERS Safety Report 17115142 (Version 1)
Quarter: 2019Q4

REPORT INFORMATION
  Report Type: Spontaneous
  Country: US (occurrence: US)
  Receive Date: 20191203
  Receipt Date: 20191203
  Transmission Date: 20200122
  Serious: Yes (Other)
  Sender: FDA-Public Use
  Company Number: None

PATIENT
  Age: 29 Year
  Sex: Female
  Weight: 61.2 kg

DRUGS (2)
  1. KRATOM [Suspect]
     Active Substance: HERBALS\MITRAGYNINE
     Indication: PAIN
     Dosage: ?          QUANTITY:1 OUNCE(S);?
     Route: 048
     Dates: start: 20190816, end: 20190817
  2. KRATOM [Suspect]
     Active Substance: HERBALS\MITRAGYNINE
     Indication: DEPRESSION
     Dosage: ?          QUANTITY:1 OUNCE(S);?
     Route: 048
     Dates: start: 20190816, end: 20190817

REACTIONS (1)
  - Malaise [None]

NARRATIVE: CASE EVENT DATE: 20190816
